FAERS Safety Report 7904236-4 (Version None)
Quarter: 2011Q4

REPORT INFORMATION
  Report Type: 
  Country: None (occurrence: None)
  Receive Date: 20111109
  Receipt Date: 20111031
  Transmission Date: 20120403
  Serious: Yes (Hospitalization)
  Sender: FDA-Public Use
  Company Number: US-BAYER-2011-009925

PATIENT
  Age: 31 Year
  Sex: Female
  Weight: 63.492 kg

DRUGS (6)
  1. ANTIBIOTICS [Concomitant]
  2. ZOLOFT [Concomitant]
     Dosage: UNK
     Route: 048
     Dates: start: 20060901, end: 20071001
  3. DICYCLOMINE [Concomitant]
     Indication: GASTRITIS
     Dosage: 20 MG, HS
     Route: 048
     Dates: start: 20071008
  4. NSAID'S [Concomitant]
     Route: 048
  5. PRILOSEC [Concomitant]
     Indication: GASTRITIS
     Dosage: 20 MG, QD
     Dates: start: 20071008
  6. YAZ [Suspect]
     Indication: CONTRACEPTION
     Dosage: UNK
     Dates: start: 20070701, end: 20081001

REACTIONS (6)
  - GASTRITIS [None]
  - INJURY [None]
  - PAIN [None]
  - RENAL ATROPHY [None]
  - EMOTIONAL DISTRESS [None]
  - GALLBLADDER DISORDER [None]
